FAERS Safety Report 24121476 (Version 1)
Quarter: 2024Q3

REPORT INFORMATION
  Report Type: Spontaneous
  Country: US (occurrence: US)
  Receive Date: 20240722
  Receipt Date: 20240722
  Transmission Date: 20241017
  Serious: No
  Sender: NOVARTIS
  Company Number: US-002147023-NVSC2024US147280

PATIENT
  Age: 32 Year

DRUGS (1)
  1. COSENTYX [Suspect]
     Active Substance: SECUKINUMAB
     Indication: Product used for unknown indication
     Dosage: 150 MG, QMO
     Route: 065
     Dates: start: 20240415

REACTIONS (2)
  - Skin lesion [Unknown]
  - Infection [Unknown]

NARRATIVE: CASE EVENT DATE: 20240619
